FAERS Safety Report 5483566-2 (Version None)
Quarter: 2007Q4

REPORT INFORMATION
  Report Type: 
  Country: None (occurrence: None)
  Receive Date: 20071012
  Receipt Date: 20071003
  Transmission Date: 20080405
  Serious: Yes (Hospitalization, Other)
  Sender: FDA-Public Use
  Company Number: US-JNJFOC-20070700575

PATIENT
  Sex: Female
  Weight: 87.54 kg

DRUGS (3)
  1. REMICADE [Suspect]
     Route: 042
  2. REMICADE [Suspect]
     Indication: ANKYLOSING SPONDYLITIS
     Route: 042
  3. LOTREL [Concomitant]
     Indication: BLOOD PRESSURE

REACTIONS (2)
  - DRUG EFFECT DECREASED [None]
  - FEMUR FRACTURE [None]
